FAERS Safety Report 15562453 (Version 2)
Quarter: 2018Q4

REPORT INFORMATION
  Report Type: Spontaneous
  Country: US (occurrence: US)
  Receive Date: 20181029
  Receipt Date: 20181029
  Transmission Date: 20190205
  Serious: Yes (Other)
  Sender: FDA-Public Use
  Company Number: US-PFIZER INC-2018429109

PATIENT
  Age: 22 Year
  Sex: Female
  Weight: 46.8 kg

DRUGS (3)
  1. MAGNESIUM SULFATE. [Suspect]
     Active Substance: MAGNESIUM SULFATE
     Indication: TOCOLYSIS
     Dosage: LOADING DOSE
     Route: 040
  2. SEVOFLURANE. [Concomitant]
     Active Substance: SEVOFLURANE
     Indication: GENERAL ANAESTHESIA
     Dosage: SEVOFLURANE IN OXYGEN AT MINIMUM ALVEOLAR CONCENTRATION 0.6
  3. MAGNESIUM SULFATE. [Suspect]
     Active Substance: MAGNESIUM SULFATE
     Dosage: CONTINUOUS INFUSION, 1X/HOUR
     Route: 041

REACTIONS (3)
  - Incorrect dose administered [Recovered/Resolved]
  - Hypothermia [Recovered/Resolved]
  - Delayed recovery from anaesthesia [Recovered/Resolved]
